FAERS Safety Report 14342891 (Version 1)
Quarter: 2018Q1

REPORT INFORMATION
  Report Type: Spontaneous
  Country: US (occurrence: US)
  Receive Date: 20180102
  Receipt Date: 20180102
  Transmission Date: 20180509
  Serious: No
  Sender: FDA-Public Use
  Company Number: US-CMP PHARMA-2017CMP00030

PATIENT
  Sex: Female
  Weight: 56.69 kg

DRUGS (6)
  1. VITAMIN C [Concomitant]
     Active Substance: ASCORBIC ACID
  2. VITAMIN B COMPLEX [Concomitant]
     Active Substance: CYANOCOBALAMIN\DEXPANTHENOL\NIACINAMIDE\PYRIDOXINE HYDROCHLORIDE\RIBOFLAVIN 5^-PHOSPHATE SODIUM\THIAMINE HYDROCHLORIDE\VITAMIN B COMPLEX
  3. SPS [Suspect]
     Active Substance: SODIUM POLYSTYRENE SULFONATE
     Dosage: 5 ML, 1X/DAY
     Route: 048
     Dates: start: 201709, end: 2017
  4. SPS [Suspect]
     Active Substance: SODIUM POLYSTYRENE SULFONATE
     Dosage: UNK
     Route: 048
     Dates: start: 20171002
  5. SPS [Suspect]
     Active Substance: SODIUM POLYSTYRENE SULFONATE
     Indication: HYPERKALAEMIA
     Dosage: 5 ML, 1X/DAY
     Route: 048
     Dates: end: 201709
  6. SPS [Suspect]
     Active Substance: SODIUM POLYSTYRENE SULFONATE
     Dosage: 15 ML, 1X/DAY
     Route: 048
     Dates: start: 2017, end: 20171002

REACTIONS (3)
  - Blood potassium increased [Recovered/Resolved]
  - Muscle spasms [Recovered/Resolved]
  - Drug ineffective [Recovered/Resolved]

NARRATIVE: CASE EVENT DATE: 2017
